FAERS Safety Report 9008656 (Version 2)
Quarter: 2013Q1

REPORT INFORMATION
  Report Type: Report from Study
  Country: US (occurrence: US)
  Receive Date: 20130111
  Receipt Date: 20130121
  Transmission Date: 20140127
  Serious: Yes (Hospitalization, Other)
  Sender: FDA-Public Use
  Company Number: US-ABBOTT-13P-163-1032878-00

PATIENT
  Age: 22 None
  Sex: Female
  Weight: 54.48 kg

DRUGS (4)
  1. HUMIRA [Suspect]
     Indication: CROHN^S DISEASE
     Route: 058
     Dates: start: 201202, end: 201205
  2. HUMIRA [Suspect]
     Route: 058
     Dates: start: 201205
  3. 6-MP [Concomitant]
     Indication: PRODUCT USED FOR UNKNOWN INDICATION
  4. ASTHMA INHALER [Concomitant]
     Indication: PRODUCT USED FOR UNKNOWN INDICATION

REACTIONS (5)
  - Fistula [Recovering/Resolving]
  - Malaise [Unknown]
  - Impaired healing [Unknown]
  - Drug ineffective [Recovered/Resolved]
  - Fistula [Recovering/Resolving]
